FAERS Safety Report 7342739-4 (Version None)
Quarter: 2011Q1

REPORT INFORMATION
  Report Type: 
  Country: None (occurrence: None)
  Receive Date: 20110310
  Receipt Date: 20110308
  Transmission Date: 20110831
  Serious: Yes (Death, Other)
  Sender: FDA-Public Use
  Company Number: FR-BAYER-2011-021151

PATIENT
  Weight: 50 kg

DRUGS (1)
  1. NEXAVAR [Suspect]
     Indication: RENAL CANCER
     Dosage: 4 DF, QD
     Route: 048
     Dates: start: 20100216

REACTIONS (3)
  - RENAL FAILURE [None]
  - SUDDEN DEATH [None]
  - URINARY TRACT OBSTRUCTION [None]
